FAERS Safety Report 13200630 (Version 5)
Quarter: 2017Q1

REPORT INFORMATION
  Report Type: Spontaneous
  Country: ZA (occurrence: ZA)
  Receive Date: 20170209
  Receipt Date: 20170310
  Transmission Date: 20170428
  Serious: Yes (Other)
  Sender: FDA-Public Use
  Company Number: ZA-AMGEN-ZAFSP2017020686

PATIENT
  Age: 48 Year
  Sex: Male
  Weight: 118 kg

DRUGS (4)
  1. ENBREL [Suspect]
     Active Substance: ETANERCEPT
     Indication: RHEUMATOID ARTHRITIS
     Dosage: 50 MG, WEEKLY
     Route: 058
     Dates: start: 20160603, end: 20161130
  2. METHOTREXATE. [Concomitant]
     Active Substance: METHOTREXATE
     Dosage: UNK
     Route: 048
  3. PLASMOQUINE [Concomitant]
     Dosage: 200 MG, UNK
     Route: 048
  4. SALAZOPYRIN [Concomitant]
     Active Substance: SULFASALAZINE
     Dosage: 15 MG, 2X/DAY (BD)
     Route: 048

REACTIONS (6)
  - Rosai-Dorfman syndrome [Unknown]
  - Organising pneumonia [Unknown]
  - Granuloma [Unknown]
  - Pneumoconiosis [Unknown]
  - Lung disorder [Unknown]
  - Interstitial lung disease [Recovering/Resolving]

NARRATIVE: CASE EVENT DATE: 20161114
